FAERS Safety Report 14860862 (Version 1)
Quarter: 2018Q2

REPORT INFORMATION
  Report Type: Spontaneous
  Country: US (occurrence: US)
  Receive Date: 20180508
  Receipt Date: 20180508
  Transmission Date: 20180711
  Serious: No
  Sender: FDA-Public Use
  Company Number: US-GLENMARK PHARMACEUTICALS-2018GMK032386

PATIENT

DRUGS (1)
  1. TOPIRAMATE TABLETS 25MG [Suspect]
     Active Substance: TOPIRAMATE
     Indication: MIGRAINE
     Dosage: 1 DF, OD (BEFORE BEDTIME)
     Route: 048
     Dates: start: 20180204, end: 20180207

REACTIONS (2)
  - Vision blurred [Recovered/Resolved]
  - Visual impairment [Recovered/Resolved]

NARRATIVE: CASE EVENT DATE: 20180206
